FAERS Safety Report 20638786 (Version 1)
Quarter: 2022Q1

REPORT INFORMATION
  Report Type: Spontaneous
  Country: JP (occurrence: JP)
  Receive Date: 20220325
  Receipt Date: 20220325
  Transmission Date: 20220424
  Serious: Yes (Death, Hospitalization)
  Sender: FDA-Public Use
  Company Number: JP-VIRTUS PHARMACEUTICALS, LLC-2022VTS00012

PATIENT
  Age: 59 Year
  Sex: Male
  Weight: 56.6 kg

DRUGS (1)
  1. LEVETIRACETAM [Suspect]
     Active Substance: LEVETIRACETAM
     Indication: Seizure prophylaxis
     Dosage: 500 MG, 2X/DAY
     Route: 048

REACTIONS (2)
  - Drug reaction with eosinophilia and systemic symptoms [Fatal]
  - Coma [Not Recovered/Not Resolved]
